FAERS Safety Report 5951374-1 (Version None)
Quarter: 2008Q4

REPORT INFORMATION
  Report Type: 
  Country: None (occurrence: None)
  Receive Date: 20081113
  Receipt Date: 20081013
  Transmission Date: 20090506
  Serious: No
  Sender: FDA-Public Use
  Company Number: US-BAYER-200835717NA

PATIENT
  Age: 57 Year
  Sex: Female

DRUGS (1)
  1. CLIMARA PRO [Suspect]
     Indication: MENOPAUSAL SYMPTOMS
     Route: 062
     Dates: start: 20080901

REACTIONS (4)
  - HOT FLUSH [None]
  - MOOD SWINGS [None]
  - NIGHT SWEATS [None]
  - PRODUCT QUALITY ISSUE [None]
